FAERS Safety Report 4870258-3 (Version None)
Quarter: 2006Q1

REPORT INFORMATION
  Report Type: 
  Country: None (occurrence: None)
  Receive Date: 20060102
  Receipt Date: 20051221
  Transmission Date: 20060701
  Serious: Yes (Hospitalization)
  Sender: FDA-Public Use
  Company Number: 2005UW19300

PATIENT
  Age: 53 Year
  Sex: Female
  Weight: 127 kg

DRUGS (8)
  1. TOPROL-XL [Suspect]
     Indication: HYPERTENSION
     Route: 048
     Dates: start: 20020101
  2. TOPROL-XL [Suspect]
     Route: 048
     Dates: start: 20030701
  3. AVALIDE [Suspect]
     Dates: end: 20030701
  4. FUROSEMIDE [Concomitant]
  5. ESTRACE [Concomitant]
  6. NEXIUM [Concomitant]
     Route: 048
  7. SINGULAIR [Concomitant]
  8. ZYRTEC [Concomitant]

REACTIONS (4)
  - ABDOMINAL PAIN UPPER [None]
  - COUGH [None]
  - DIARRHOEA [None]
  - DYSPNOEA [None]
